FAERS Safety Report 5121944-1 (Version None)
Quarter: 2006Q4

REPORT INFORMATION
  Report Type: 
  Country: None (occurrence: None)
  Receive Date: 20061003
  Receipt Date: 20060926
  Transmission Date: 20070319
  Serious: No
  Sender: FDA-Public Use
  Company Number: E2090-00092-SPO-JP

PATIENT
  Age: 15 Year
  Sex: Female

DRUGS (7)
  1. ZONISAMIDE [Suspect]
     Indication: EPILEPSY
     Dosage: SEE IMAGE, ORAL
     Route: 048
     Dates: start: 20051108, end: 20051226
  2. ZONISAMIDE [Suspect]
     Indication: EPILEPSY
     Dosage: SEE IMAGE, ORAL
     Route: 048
     Dates: start: 20051227, end: 20060227
  3. CARBAMAZEPINE [Concomitant]
  4. VALPROATE SODIUM [Concomitant]
  5. MYSTAN (CLOBAZAM) (CLOBAZAM) [Concomitant]
  6. LEVOTHYROXINE SODIUM [Concomitant]
  7. CAFFEINE AND SODIUM BENZOATE (CAFFEINE AND SODIUM BENZOATE) [Concomitant]

REACTIONS (5)
  - APLASIA PURE RED CELL [None]
  - DECREASED APPETITE [None]
  - HEPATIC FUNCTION ABNORMAL [None]
  - PALLOR [None]
  - WEIGHT DECREASED [None]
